FAERS Safety Report 9778501 (Version 1)
Quarter: 2013Q4

REPORT INFORMATION
  Report Type: Spontaneous
  Country: US (occurrence: US)
  Receive Date: 20131223
  Receipt Date: 20131223
  Transmission Date: 20140711
  Serious: No
  Sender: FDA-Public Use
  Company Number: US-GE HEALTHCARE MEDICAL DIAGNOSTICS-OMPQ-PR-1307S-0848

PATIENT
  Age: 61 Year
  Sex: Female
  Weight: 89.89 kg

DRUGS (2)
  1. OMNIPAQUE [Suspect]
     Indication: LYMPH NODE PAIN
     Route: 042
     Dates: start: 20130619, end: 20130619
  2. OMNIPAQUE [Suspect]
     Indication: DIAGNOSTIC PROCEDURE

REACTIONS (2)
  - Swelling [Recovered/Resolved]
  - Erythema [Recovered/Resolved]
